FAERS Safety Report 9685020 (Version 2)
Quarter: 2013Q4

REPORT INFORMATION
  Report Type: Spontaneous
  Country: BR (occurrence: BR)
  Receive Date: 20131113
  Receipt Date: 20131113
  Transmission Date: 20140711
  Serious: Yes (Other)
  Sender: FDA-Public Use
  Company Number: BR-AMGEN-BRASP2013038603

PATIENT
  Age: 48 Year
  Sex: Female
  Weight: 69 kg

DRUGS (3)
  1. ENBREL [Suspect]
     Indication: RHEUMATOID ARTHRITIS
     Dosage: 50 MG, WEEKLY
     Route: 058
     Dates: start: 20130426
  2. PREDNISONE [Concomitant]
     Indication: ARTHRITIS
     Dosage: UNK
  3. NAPROXEN [Concomitant]
     Dosage: UNK

REACTIONS (8)
  - Eosinophilia [Unknown]
  - Anisocytosis [Unknown]
  - Lymphocytosis [Unknown]
  - Abdominal pain upper [Unknown]
  - Leukopenia [Unknown]
  - Injection site nodule [Unknown]
  - Injection site erythema [Unknown]
  - Injection site pruritus [Unknown]
